FAERS Safety Report 11266992 (Version 1)
Quarter: 2015Q3

REPORT INFORMATION
  Report Type: Spontaneous
  Country: CH (occurrence: CH)
  Receive Date: 20150713
  Receipt Date: 20150713
  Transmission Date: 20151125
  Serious: Yes (Other)
  Sender: FDA-Public Use
  Company Number: CH-GILEAD-2015-0162108

PATIENT
  Age: 16 Year
  Sex: Male

DRUGS (2)
  1. CAYSTON [Suspect]
     Active Substance: AZTREONAM
     Indication: PRODUCT USED FOR UNKNOWN INDICATION
     Dosage: INTERMITTENT USE WITH TOBRAMYCIN AFTER 28 DAYS
     Route: 065
     Dates: start: 2012
  2. TOBRAMYCIN. [Concomitant]
     Active Substance: TOBRAMYCIN
     Indication: PRODUCT USED FOR UNKNOWN INDICATION
     Dosage: UNK INTERMITTENT USE
     Route: 065

REACTIONS (2)
  - Bronchopulmonary aspergillosis allergic [Unknown]
  - Off label use [Unknown]
